FAERS Safety Report 5613205-9 (Version None)
Quarter: 2008Q1

REPORT INFORMATION
  Report Type: 
  Country: None (occurrence: None)
  Receive Date: 20080129
  Receipt Date: 20080117
  Transmission Date: 20080703
  Serious: Yes (Life-Threatening)
  Sender: FDA-Public Use
  Company Number: 79841

PATIENT
  Age: 74 Year
  Sex: Male

DRUGS (11)
  1. ALVESCO [Suspect]
     Indication: ASTHMA
     Dosage: DAILY DOSE 2 PUFF INHALATION
     Route: 055
     Dates: start: 20071228
  2. QVAR 40 [Suspect]
     Indication: ASTHMA
     Dosage: DF INHALATION
     Dates: end: 20071227
  3. TRYTHMEN [Concomitant]
  4. TERDAN-L [Concomitant]
  5. PRANLUKAST [Concomitant]
  6. ZYRTEC [Concomitant]
  7. DIGOXIN [Concomitant]
  8. OLMETEC [Concomitant]
  9. LACALMIN [Concomitant]
  10. FUROSEMIDE [Concomitant]
  11. BECLAZONE [Concomitant]

REACTIONS (3)
  - HERPES ZOSTER [None]
  - ORAL CANDIDIASIS [None]
  - SWELLING FACE [None]
